FAERS Safety Report 9765095 (Version 1)
Quarter: 2013Q4

REPORT INFORMATION
  Report Type: Spontaneous
  Country: US (occurrence: None)
  Receive Date: 20131213
  Receipt Date: 20131213
  Transmission Date: 20140711
  Serious: Yes (Other)
  Sender: FDA-Public Use
  Company Number: 2013SA024698

PATIENT
  Age: 82 Year
  Sex: Male

DRUGS (1)
  1. CAPZASIN [Suspect]
     Indication: PRURITUS
     Dosage: ; UNKNOWN ; TOPICAL
     Dates: start: 20100921

REACTIONS (6)
  - Blister [None]
  - Herpes zoster [None]
  - Thermal burn [None]
  - Wrong technique in drug usage process [None]
  - Application site erythema [None]
  - Application site pain [None]
